FAERS Safety Report 18321592 (Version 1)
Quarter: 2020Q3

REPORT INFORMATION
  Report Type: Spontaneous
  Country: US (occurrence: US)
  Receive Date: 20200929
  Receipt Date: 20200929
  Transmission Date: 20201103
  Serious: No
  Sender: FDA-Public Use
  Company Number: US-BION-008177

PATIENT
  Age: 90 Year
  Sex: Male
  Weight: 72.57 kg

DRUGS (1)
  1. IMODIUM A?D [Suspect]
     Active Substance: LOPERAMIDE HYDROCHLORIDE
     Indication: FLATULENCE
     Dosage: 2 SOFTGELS ONCE?LAST DATE OF ADMINISTRATION : 05?AUG?2019
     Route: 048
     Dates: start: 20190805

REACTIONS (2)
  - Drug ineffective for unapproved indication [Not Recovered/Not Resolved]
  - Expired product administered [Not Recovered/Not Resolved]
